FAERS Safety Report 4877334-X (Version None)
Quarter: 2006Q1

REPORT INFORMATION
  Report Type: 
  Country: None (occurrence: None)
  Receive Date: 20060109
  Receipt Date: 20051227
  Transmission Date: 20060701
  Serious: Yes (Hospitalization)
  Sender: FDA-Public Use
  Company Number: 2005-BP-21843RO

PATIENT
  Age: 69 Year
  Sex: Male

DRUGS (7)
  1. METHOTREXATE [Suspect]
     Dosage: 12.5 MG PER WEEK, PO
     Route: 048
  2. FOLIC ACID [Concomitant]
  3. BACTRIM [Concomitant]
  4. PREDNISOLONE [Concomitant]
  5. RISEDRONATE (RISEDRONATE SODIUM) [Concomitant]
  6. ATENOLOL [Concomitant]
  7. FELODIPINE [Concomitant]

REACTIONS (4)
  - EPISTAXIS [None]
  - MUCOSAL INFLAMMATION [None]
  - PANCYTOPENIA [None]
  - SEPSIS [None]
